FAERS Safety Report 7929516-8 (Version None)
Quarter: 2011Q4

REPORT INFORMATION
  Report Type: 
  Country: None (occurrence: None)
  Receive Date: 20111121
  Receipt Date: 20111108
  Transmission Date: 20120403
  Serious: Yes (Hospitalization)
  Sender: FDA-Public Use
  Company Number: FR-ELI_LILLY_AND_COMPANY-FR201111002141

PATIENT
  Sex: Male
  Weight: 55 kg

DRUGS (7)
  1. DIGOXIN [Concomitant]
     Dosage: 1 DF, QD
     Route: 048
  2. BUMETANIDE [Concomitant]
     Dosage: 1 DF, QD
     Route: 048
  3. CRESTOR [Concomitant]
     Dosage: 10 MG, QD
     Route: 048
  4. PREVISCAN [Concomitant]
     Dosage: 5 MG, QD
     Route: 048
  5. CORDARONE [Concomitant]
     Dosage: 200 MG, QD
     Route: 048
     Dates: end: 20110707
  6. PROZAC [Suspect]
     Dosage: 20 MG, QD
     Route: 048
  7. NEBIVOLOL HCL [Concomitant]
     Dosage: 5 MG, QD
     Route: 048

REACTIONS (4)
  - INTERSTITIAL LUNG DISEASE [None]
  - INTENTIONAL DRUG MISUSE [None]
  - INTERNATIONAL NORMALISED RATIO INCREASED [None]
  - FALL [None]
